FAERS Safety Report 19951044 (Version 2)
Quarter: 2021Q4

REPORT INFORMATION
  Report Type: Spontaneous
  Country: US (occurrence: US)
  Receive Date: 20211013
  Receipt Date: 20211019
  Transmission Date: 20220303
  Serious: No
  Sender: FDA-Public Use
  Company Number: US-PFIZER INC-2021902750

PATIENT
  Age: 59 Year
  Sex: Female

DRUGS (23)
  1. IBRANCE [Suspect]
     Active Substance: PALBOCICLIB
     Indication: Breast cancer female
     Dosage: 125 MG, CYCLIC (ONCE DAILY ON DAYS 1 TO 21, FOLLOWED BY 7 DAYS OF REST, REPEATED EVERY 28 DAY)
  2. FISH OIL [Concomitant]
     Active Substance: FISH OIL
  3. VITAMIN D3 [Concomitant]
     Active Substance: CHOLECALCIFEROL
  4. VITAMIN B COMPLEX [Concomitant]
     Active Substance: CYANOCOBALAMIN\DEXPANTHENOL\NIACINAMIDE\PYRIDOXINE HYDROCHLORIDE\RIBOFLAVIN 5^-PHOSPHATE SODIUM\THIA
  5. HERBALS [Concomitant]
     Active Substance: HERBALS
  6. FOLIC ACID [Concomitant]
     Active Substance: FOLIC ACID
  7. ZYRTEC [Concomitant]
     Active Substance: CETIRIZINE HYDROCHLORIDE
  8. ALPRAZOLAM ER [Concomitant]
     Active Substance: ALPRAZOLAM
  9. TOCOPHEROL [Concomitant]
     Active Substance: TOCOPHEROL
  10. ASPIRIN [Concomitant]
     Active Substance: ASPIRIN
  11. COD LIVER OIL [COD-LIVER OIL] [Concomitant]
  12. ZINC [Concomitant]
     Active Substance: ZINC
     Dosage: 15 UNK
  13. MELOXICAM [Concomitant]
     Active Substance: MELOXICAM
  14. DEXAMETHASONE\TOBRAMYCIN [Concomitant]
     Active Substance: DEXAMETHASONE\TOBRAMYCIN
  15. PATADAY [Concomitant]
     Active Substance: OLOPATADINE HYDROCHLORIDE
  16. VITAMIN A AND D [COLECALCIFEROL;RETINOL] [Concomitant]
  17. PYRIDOXINE [Concomitant]
     Active Substance: PYRIDOXINE
  18. CYANOCOBALAMIN [Concomitant]
     Active Substance: CYANOCOBALAMIN
  19. GARLIC OIL [Concomitant]
     Active Substance: GARLIC OIL
     Dosage: 1000 UNK
  20. FASLODEX [Concomitant]
     Active Substance: FULVESTRANT
  21. MAGNESIUM CHLORIDE [Concomitant]
     Active Substance: MAGNESIUM CHLORIDE
  22. CALCIUM\VITAMIN D [Concomitant]
     Active Substance: CALCIUM\VITAMIN D
  23. OXYCODONE HYDROCHLORIDE [Concomitant]
     Active Substance: OXYCODONE HYDROCHLORIDE

REACTIONS (5)
  - Product dose omission issue [Unknown]
  - Diarrhoea [Unknown]
  - Stomatitis [Unknown]
  - Lacrimation increased [Unknown]
  - Eye discharge [Unknown]
